FAERS Safety Report 16209482 (Version 1)
Quarter: 2019Q2

REPORT INFORMATION
  Report Type: Spontaneous
  Country: IL (occurrence: IL)
  Receive Date: 20190417
  Receipt Date: 20190417
  Transmission Date: 20190711
  Serious: Yes (Other)
  Sender: FDA-Public Use
  Company Number: IL-SA-2019SA097626

PATIENT
  Sex: Male
  Weight: 1.89 kg

DRUGS (9)
  1. SIMVASTATINE [Concomitant]
     Active Substance: SIMVASTATIN
     Dosage: UNK
     Dates: start: 20131024, end: 20140619
  2. ASPIRINE [Concomitant]
     Active Substance: ASPIRIN
     Dosage: UNK
     Dates: start: 20140314, end: 20140619
  3. ALDOMIN [Concomitant]
     Dosage: UNK
     Dates: start: 20140610, end: 20140619
  4. LEVEMIR [Suspect]
     Active Substance: INSULIN DETEMIR
     Dosage: 30 U, QD
     Route: 064
     Dates: start: 20140122, end: 20140619
  5. PRESSOLAT [Concomitant]
     Dosage: UNK
     Route: 065
     Dates: start: 20140608, end: 20140619
  6. NOVORAPID [Suspect]
     Active Substance: INSULIN ASPART
     Dosage: 20 U, QD
     Route: 064
     Dates: start: 20131024, end: 20140619
  7. OMEPRADEX [Concomitant]
     Active Substance: OMEPRAZOLE
     Dosage: UNK
     Dates: start: 20131024, end: 20140619
  8. LANTUS [Suspect]
     Active Substance: INSULIN GLARGINE
     Dosage: 30 U, QD
     Route: 064
     Dates: start: 20131024, end: 20140121
  9. DERALIN [PROPRANOLOL] [Concomitant]
     Dosage: UNK
     Dates: start: 20140610, end: 20140619

REACTIONS (4)
  - Dyspnoea [Not Recovered/Not Resolved]
  - Hypoglycaemia neonatal [Recovered/Resolved]
  - Neonatal respiratory distress syndrome [Recovered/Resolved]
  - Foetal exposure during pregnancy [Unknown]

NARRATIVE: CASE EVENT DATE: 20140619
